FAERS Safety Report 20541580 (Version 1)
Quarter: 2022Q1

REPORT INFORMATION
  Report Type: Spontaneous
  Country: FI (occurrence: FI)
  Receive Date: 20220302
  Receipt Date: 20220302
  Transmission Date: 20220424
  Serious: Yes (Hospitalization)
  Sender: FDA-Public Use
  Company Number: FI-FIMEA-20215942

PATIENT
  Age: 58 Year
  Sex: Male

DRUGS (2)
  1. REMICADE [Suspect]
     Active Substance: INFLIXIMAB
     Indication: Colitis ulcerative
     Route: 042
     Dates: start: 20210122, end: 20210811
  2. AZATHIOPRINE SODIUM [Concomitant]
     Active Substance: AZATHIOPRINE SODIUM
     Dosage: 100,MG,DAILY
     Dates: start: 20191003

REACTIONS (7)
  - Atrial fibrillation [Recovering/Resolving]
  - Diabetes mellitus [Recovering/Resolving]
  - Pericarditis [Recovering/Resolving]
  - Eyelid oedema [Recovering/Resolving]
  - Arthralgia [Recovering/Resolving]
  - Infection [Recovering/Resolving]
  - Myalgia [Recovering/Resolving]

NARRATIVE: CASE EVENT DATE: 20210928
